FAERS Safety Report 17400483 (Version 1)
Quarter: 2020Q1

REPORT INFORMATION
  Report Type: Spontaneous
  Country: US (occurrence: US)
  Receive Date: 20200208
  Receipt Date: 20200208
  Transmission Date: 20200409
  Serious: Yes (Other)
  Sender: FDA-Public Use
  Company Number: None

PATIENT
  Age: 4 Year
  Sex: Male
  Weight: 18 kg

DRUGS (3)
  1. CEPHALEXIN FOR ORAL SUSPENSION USP [Suspect]
     Active Substance: CEPHALEXIN
     Indication: STAPHYLOCOCCAL INFECTION
     Dosage: ?
     Route: 048
     Dates: start: 20200131, end: 20200206
  2. EPIPEN JR [Concomitant]
     Active Substance: EPINEPHRINE
  3. DAILY CHILDREN^S VITAMIN [Concomitant]

REACTIONS (10)
  - Negative thoughts [None]
  - Obsessive-compulsive disorder [None]
  - Skin laceration [None]
  - Personality change [None]
  - Intentional self-injury [None]
  - Screaming [None]
  - Obsessive thoughts [None]
  - Physical assault [None]
  - Tongue biting [None]
  - Homicidal ideation [None]

NARRATIVE: CASE EVENT DATE: 20200131
